FAERS Safety Report 24623674 (Version 1)
Quarter: 2024Q4

REPORT INFORMATION
  Report Type: Spontaneous
  Country: CA (occurrence: CA)
  Receive Date: 20241115
  Receipt Date: 20241115
  Transmission Date: 20250115
  Serious: Yes (Hospitalization, Other)
  Sender: HIKMA
  Company Number: CA-HIKMA PHARMACEUTICALS USA INC.-CA-H14001-24-10443

PATIENT
  Age: 49 Year
  Sex: Female

DRUGS (24)
  1. CLONAZEPAM [Suspect]
     Active Substance: CLONAZEPAM
     Dosage: 0.5 MILLIGRAM
     Route: 065
  2. CLONAZEPAM [Suspect]
     Active Substance: CLONAZEPAM
     Indication: Anxiety
     Dosage: 1 MILLIGRAM
     Route: 065
  3. CLONAZEPAM [Suspect]
     Active Substance: CLONAZEPAM
     Indication: Depression
     Dosage: UNKNOWN
     Route: 065
  4. DIAZEPAM [Suspect]
     Active Substance: DIAZEPAM
     Indication: Preoperative care
     Dosage: 10 MILLIGRAM
     Route: 065
  5. FENTANYL [Suspect]
     Active Substance: FENTANYL
     Indication: Anaesthesia
     Dosage: UNK
     Route: 042
  6. FLUVOXAMINE [Suspect]
     Active Substance: FLUVOXAMINE
     Indication: Product used for unknown indication
     Dosage: UNKNOWN
     Route: 065
  7. MEPERIDINE [Suspect]
     Active Substance: MEPERIDINE
     Indication: Product used for unknown indication
     Dosage: UNKNOWN
     Route: 065
  8. METHYLENE BLUE [Suspect]
     Active Substance: METHYLENE BLUE
     Indication: Hypotension
     Dosage: 1 MG/KG
     Route: 065
  9. METHYLENE BLUE [Suspect]
     Active Substance: METHYLENE BLUE
     Indication: Anaesthesia
  10. MIDAZOLAM HYDROCHLORIDE [Suspect]
     Active Substance: MIDAZOLAM HYDROCHLORIDE
     Indication: Hypotension
     Dosage: UNKNOWN
     Route: 065
  11. MIDAZOLAM HYDROCHLORIDE [Suspect]
     Active Substance: MIDAZOLAM HYDROCHLORIDE
     Indication: Anaesthesia
  12. NOREPINEPHRINE [Suspect]
     Active Substance: NOREPINEPHRINE\NOREPINEPHRINE BITARTRATE
     Indication: Hypotension
     Dosage: UNKNOWN
     Route: 065
  13. PAROXETINE HYDROCHLORIDE [Suspect]
     Active Substance: PAROXETINE HYDROCHLORIDE
     Indication: Depression
     Dosage: 40 MILLIGRAM
     Route: 065
  14. PAROXETINE HYDROCHLORIDE [Suspect]
     Active Substance: PAROXETINE HYDROCHLORIDE
     Indication: Anxiety
  15. PROPOFOL [Suspect]
     Active Substance: PROPOFOL
     Indication: Induction of anaesthesia
     Dosage: 9 MG/KG
     Route: 065
  16. QUETIAPINE FUMARATE [Suspect]
     Active Substance: QUETIAPINE FUMARATE
     Indication: Hypotension
     Dosage: 25 MILLIGRAM, BID
     Route: 048
  17. QUETIAPINE FUMARATE [Suspect]
     Active Substance: QUETIAPINE FUMARATE
     Indication: Anxiety
  18. QUETIAPINE FUMARATE [Suspect]
     Active Substance: QUETIAPINE FUMARATE
     Indication: Depression
  19. ROCURONIUM [Suspect]
     Active Substance: ROCURONIUM BROMIDE
     Indication: Hypotonia
     Dosage: 1 MG/KG
     Route: 065
  20. ROCURONIUM [Suspect]
     Active Substance: ROCURONIUM BROMIDE
     Indication: Anxiety
  21. ROCURONIUM [Suspect]
     Active Substance: ROCURONIUM BROMIDE
     Indication: Depression
  22. SEVOFLURANE [Suspect]
     Active Substance: SEVOFLURANE
     Indication: Maintenance of anaesthesia
     Dosage: UNKNOWN
     Route: 050
  23. SEVOFLURANE [Suspect]
     Active Substance: SEVOFLURANE
     Indication: Anxiety
  24. SEVOFLURANE [Suspect]
     Active Substance: SEVOFLURANE
     Indication: Depression

REACTIONS (12)
  - Alanine aminotransferase increased [Recovered/Resolved]
  - Amylase increased [Recovered/Resolved]
  - Blood creatine phosphokinase increased [Recovered/Resolved]
  - Blood lactate dehydrogenase increased [Recovered/Resolved]
  - Blood potassium increased [Recovered/Resolved]
  - Hypotension [Recovered/Resolved]
  - Myoglobin urine present [Recovered/Resolved]
  - Serotonin syndrome [Recovered/Resolved]
  - Toxic encephalopathy [Recovered/Resolved]
  - Troponin increased [Recovered/Resolved]
  - Drug interaction [Recovered/Resolved]
  - Drug level below therapeutic [Recovered/Resolved]
